FAERS Safety Report 10505248 (Version 2)
Quarter: 2014Q4

REPORT INFORMATION
  Report Type: Report from Study
  Country: ES (occurrence: ES)
  Receive Date: 20141008
  Receipt Date: 20141008
  Transmission Date: 20150528
  Serious: Yes (Death, Hospitalization)
  Sender: FDA-Public Use
  Company Number: ES-CELGENE-144-21660-14073312

PATIENT
  Age: 72 Year
  Sex: Female
  Weight: 71 kg

DRUGS (18)
  1. ABRAXANE [Suspect]
     Active Substance: PACLITAXEL
     Indication: BREAST CANCER METASTATIC
     Dosage: 80 MILLIGRAM/SQ. METER
     Route: 041
     Dates: start: 20140704, end: 20140725
  2. ZOMETA [Concomitant]
     Active Substance: ZOLEDRONIC ACID
     Indication: PROPHYLAXIS
     Route: 041
     Dates: start: 20140701, end: 20140701
  3. EFFENTORA [Concomitant]
     Active Substance: FENTANYL CITRATE
     Indication: TUMOUR PAIN
     Route: 061
     Dates: start: 20140516, end: 20140711
  4. LORAZEPAM. [Concomitant]
     Active Substance: LORAZEPAM
     Indication: PROPHYLAXIS
     Route: 048
     Dates: start: 20130705, end: 20140808
  5. OMEPRAZOLE. [Concomitant]
     Active Substance: OMEPRAZOLE
     Indication: PROPHYLAXIS
     Dosage: 625 MILLIGRAM
     Route: 048
     Dates: end: 20140721
  6. MASTICAL D [Concomitant]
     Indication: PROPHYLAXIS
     Route: 048
     Dates: start: 20140701, end: 20140728
  7. ADIRO [Concomitant]
     Active Substance: ASPIRIN
     Indication: ANTICOAGULANT THERAPY
     Route: 048
     Dates: start: 2013, end: 20140728
  8. EUTIROX [Concomitant]
     Active Substance: LEVOTHYROXINE SODIUM
     Indication: HYPOTHYROIDISM
     Route: 048
     Dates: start: 200508, end: 20140805
  9. DAKTARIN [Concomitant]
     Active Substance: MICONAZOLE NITRATE
     Indication: PROPHYLAXIS
     Route: 061
     Dates: start: 20140804, end: 20140805
  10. MANIDON [Concomitant]
     Indication: HYPERTENSION
     Dosage: 2.5 MILLIGRAM
     Route: 048
     Dates: start: 20140711, end: 20140808
  11. HALOPERIDOL. [Concomitant]
     Active Substance: HALOPERIDOL
     Indication: AGITATION
     Dosage: 50 MILLIGRAM
     Route: 041
     Dates: start: 20140801, end: 20140810
  12. HIDERNAL [Concomitant]
     Indication: PROPHYLAXIS
     Route: 048
     Dates: start: 20140718, end: 20140805
  13. MOVICOL [Concomitant]
     Active Substance: POLYETHYLENE GLYCOL 3350\POTASSIUM CHLORIDE\SODIUM BICARBONATE\SODIUM CHLORIDE
     Indication: PROPHYLAXIS
     Dosage: 13.8 GRAM
     Route: 048
     Dates: start: 20140711, end: 20140728
  14. LANTUS [Concomitant]
     Active Substance: INSULIN GLARGINE
     Indication: HYPERGLYCAEMIA
     Dosage: 1 GRAM
     Route: 058
     Dates: start: 20140801, end: 20140810
  15. MORPHINE SULFATE/NALTREXONE HYDROCHLORIDE [Concomitant]
     Active Substance: MORPHINE SULFATE\NALTREXONE HYDROCHLORIDE
     Indication: TUMOUR PAIN
     Route: 048
     Dates: start: 20140516, end: 20140711
  16. MINIPRES [Concomitant]
     Indication: HYPERTENSION
     Dosage: 2.5 MILLIGRAM
     Route: 048
     Dates: start: 20140711, end: 20140808
  17. OMEPRAZOLE. [Concomitant]
     Active Substance: OMEPRAZOLE
     Route: 041
     Dates: start: 20140722, end: 20140808
  18. MOVICOL [Concomitant]
     Active Substance: POLYETHYLENE GLYCOL 3350\POTASSIUM CHLORIDE\SODIUM BICARBONATE\SODIUM CHLORIDE
     Dosage: 2.5 MILLIGRAM
     Route: 048
     Dates: start: 20140711, end: 20140728

REACTIONS (5)
  - Tumour pain [Not Recovered/Not Resolved]
  - Decreased appetite [Not Recovered/Not Resolved]
  - Dyspnoea [Not Recovered/Not Resolved]
  - Malignant neoplasm progression [Fatal]
  - Fatigue [Not Recovered/Not Resolved]

NARRATIVE: CASE EVENT DATE: 20140711
